FAERS Safety Report 6926343-5 (Version None)
Quarter: 2010Q3

REPORT INFORMATION
  Report Type: 
  Country: None (occurrence: None)
  Receive Date: 20100816
  Receipt Date: 20100618
  Transmission Date: 20110219
  Serious: No
  Sender: FDA-Public Use
  Company Number: US-BAYER-201027197NA

PATIENT
  Age: 25 Year
  Sex: Female

DRUGS (1)
  1. MIRENA [Suspect]
     Indication: CONTRACEPTION
     Route: 015
     Dates: start: 20070901

REACTIONS (7)
  - CERVIX INFLAMMATION [None]
  - HYPOMENORRHOEA [None]
  - MENORRHAGIA [None]
  - MENSTRUATION DELAYED [None]
  - METRORRHAGIA [None]
  - POLYMENORRHOEA [None]
  - SMEAR CERVIX ABNORMAL [None]
